FAERS Safety Report 5621432-X (Version None)
Quarter: 2008Q1

REPORT INFORMATION
  Report Type: 
  Country: None (occurrence: None)
  Receive Date: 20080206
  Receipt Date: 20080125
  Transmission Date: 20080703
  Serious: Yes (Other)
  Sender: FDA-Public Use
  Company Number: 230949J08USA

PATIENT
  Age: 70 Year
  Sex: Female

DRUGS (3)
  1. REBIF [Suspect]
     Indication: MULTIPLE SCLEROSIS
     Dosage: 44 MCG, 3 IN 1 WEEKS, SUBCUTANEOUS
     Route: 058
     Dates: start: 20030415
  2. TYLENOL (COTYLENOL) [Concomitant]
  3. ANTIDEPRESSANT (ANTIDEPRESSANTS) [Concomitant]

REACTIONS (1)
  - ARTHROPATHY [None]
